FAERS Safety Report 15135877 (Version 1)
Quarter: 2018Q3

REPORT INFORMATION
  Report Type: Spontaneous
  Country: IT (occurrence: IT)
  Receive Date: 20180712
  Receipt Date: 20180712
  Transmission Date: 20181010
  Serious: Yes (Death)
  Sender: FDA-Public Use
  Company Number: IT-TEVA-2018-IT-918361

PATIENT
  Age: 77 Year
  Sex: Male
  Weight: 84 kg

DRUGS (5)
  1. QUETIAPINE. [Concomitant]
     Active Substance: QUETIAPINE
     Route: 048
  2. CARDIOASPIRIN [Concomitant]
     Active Substance: ASPIRIN
     Route: 065
  3. ENALAPRIL [Concomitant]
     Active Substance: ENALAPRIL
     Route: 065
  4. LITHIUM. [Suspect]
     Active Substance: LITHIUM
     Dosage: 750 MILLIGRAM DAILY;
     Route: 048
     Dates: start: 20170101, end: 20170128
  5. AKINETON [Concomitant]
     Active Substance: BIPERIDEN HYDROCHLORIDE

REACTIONS (1)
  - Sopor [Fatal]

NARRATIVE: CASE EVENT DATE: 20170116
